FAERS Safety Report 5156112-0 (Version None)
Quarter: 2006Q4

REPORT INFORMATION
  Report Type: 
  Country: None (occurrence: None)
  Receive Date: 20061122
  Receipt Date: 20061121
  Transmission Date: 20070319
  Serious: Yes (Life-Threatening)
  Sender: FDA-Public Use
  Company Number: PHBS2006GR18003

PATIENT
  Age: 40 Year
  Sex: Male

DRUGS (2)
  1. LEPONEX [Suspect]
     Route: 048
  2. INTERFERON [Suspect]
     Indication: HEPATITIS C

REACTIONS (2)
  - AGRANULOCYTOSIS [None]
  - HEPATITIS C [None]
